FAERS Safety Report 4967853-X (Version None)
Quarter: 2006Q2

REPORT INFORMATION
  Report Type: 
  Country: None (occurrence: None)
  Receive Date: 20060404
  Receipt Date: 20060323
  Transmission Date: 20061013
  Serious: Yes (Hospitalization)
  Sender: FDA-Public Use
  Company Number: 2006BI004515

PATIENT
  Sex: Female
  Weight: 45.3597 kg

DRUGS (5)
  1. AVONEX [Suspect]
     Indication: MULTIPLE SCLEROSIS
     Dosage: QW; IM
     Route: 030
     Dates: start: 20010101, end: 20050201
  2. KLONOPIN [Concomitant]
  3. REMERON [Concomitant]
  4. ZYPREXA [Concomitant]
  5. LITHIUM CARBONATE [Concomitant]

REACTIONS (7)
  - ANXIETY [None]
  - CONVULSION [None]
  - CRYING [None]
  - IMMUNOSUPPRESSION [None]
  - INFECTION [None]
  - LUNG DISORDER [None]
  - MUSCLE DISORDER [None]
